FAERS Safety Report 17201103 (Version 2)
Quarter: 2020Q1

REPORT INFORMATION
  Report Type: Spontaneous
  Country: US (occurrence: US)
  Receive Date: 20191226
  Receipt Date: 20200110
  Transmission Date: 20200409
  Serious: Yes (Other)
  Sender: FDA-Public Use
  Company Number: US-TORRENT-00009575

PATIENT
  Age: 62 Year
  Sex: Female
  Weight: 108 kg

DRUGS (3)
  1. ACEON [Concomitant]
     Active Substance: PERINDOPRIL ERBUMINE
     Indication: PRODUCT USED FOR UNKNOWN INDICATION
     Dosage: UNKNOWN
  2. OLMESARTAN MEDOXOMIL. [Suspect]
     Active Substance: OLMESARTAN MEDOXOMIL
     Indication: HYPERTENSION
     Dosage: 10 MG ONCE A DAY, 5 IN MORNING AND?5 MG IN EVENING
     Route: 048
     Dates: start: 20191213
  3. TOPROL XL [Suspect]
     Active Substance: METOPROLOL SUCCINATE
     Indication: HYPERTENSION
     Dosage: ONCE A DAY IN MORNING
     Route: 048
     Dates: start: 20191213

REACTIONS (7)
  - Pruritus [Not Recovered/Not Resolved]
  - Dysphagia [Recovered/Resolved]
  - Gastrooesophageal reflux disease [Unknown]
  - Upper-airway cough syndrome [Recovered/Resolved]
  - Sinus disorder [Recovered/Resolved]
  - Dizziness [Recovering/Resolving]
  - Hypersensitivity [Recovered/Resolved]

NARRATIVE: CASE EVENT DATE: 20191217
